FAERS Safety Report 15031474 (Version 2)
Quarter: 2018Q4

REPORT INFORMATION
  Report Type: Spontaneous
  Country: US (occurrence: US)
  Receive Date: 20180619
  Receipt Date: 20181005
  Transmission Date: 20190204
  Serious: No
  Sender: FDA-Public Use
  Company Number: US-ACTELION-A-NJ2018-174073

PATIENT
  Age: 76 Year
  Sex: Female

DRUGS (1)
  1. OPSUMIT [Suspect]
     Active Substance: MACITENTAN
     Indication: PULMONARY ARTERIAL HYPERTENSION
     Dosage: 10 MG, QD
     Route: 048
     Dates: start: 20180511, end: 20180815

REACTIONS (5)
  - Peripheral swelling [Unknown]
  - Headache [Unknown]
  - Dizziness [Unknown]
  - Blood pressure systolic increased [Unknown]
  - Swelling [Unknown]

NARRATIVE: CASE EVENT DATE: 20180521
